FAERS Safety Report 14815367 (Version 2)
Quarter: 2020Q2

REPORT INFORMATION
  Report Type: Spontaneous
  Country: CA (occurrence: CA)
  Receive Date: 20180426
  Receipt Date: 20200505
  Transmission Date: 20200713
  Serious: Yes (Other)
  Sender: FDA-Public Use
  Company Number: CA-ROCHE-1712238

PATIENT
  Age: 63 Year
  Sex: Female

DRUGS (29)
  1. ACTEMRA [Suspect]
     Active Substance: TOCILIZUMAB
     Indication: PRODUCT USED FOR UNKNOWN INDICATION
     Dosage: THERAPY DURATION: 2.0 YEAR(S)
     Route: 042
  2. ENBREL [Suspect]
     Active Substance: ETANERCEPT
     Dosage: THERAPY DURATION: 2 YEARS
     Route: 058
  3. METHOTREXATE. [Suspect]
     Active Substance: METHOTREXATE
     Indication: RHEUMATOID ARTHRITIS
     Route: 048
  4. XELJANZ [Concomitant]
     Active Substance: TOFACITINIB CITRATE
     Route: 065
  5. METHOTREXATE SODIUM. [Concomitant]
     Active Substance: METHOTREXATE SODIUM
     Indication: PRODUCT USED FOR UNKNOWN INDICATION
     Route: 065
  6. ENBREL [Suspect]
     Active Substance: ETANERCEPT
     Indication: RHEUMATOID ARTHRITIS
     Dosage: THERAPY DURATION: 4 MONTHS
     Route: 058
  7. LEFLUNOMIDE. [Suspect]
     Active Substance: LEFLUNOMIDE
     Dosage: DURATION: 8.0 MONTHS
     Route: 048
  8. METHOTREXATE. [Suspect]
     Active Substance: METHOTREXATE
     Route: 065
  9. APO-LEFLUNOMIDE [Suspect]
     Active Substance: LEFLUNOMIDE
     Route: 048
  10. ANAKINRA [Suspect]
     Active Substance: ANAKINRA
     Dosage: THERAPY DURATION:  3 YEARS
     Route: 058
  11. HUMIRA [Suspect]
     Active Substance: ADALIMUMAB
     Indication: RHEUMATOID ARTHRITIS
     Dosage: THERAPY DURATION: 3 MONTHS
     Route: 058
  12. HUMIRA [Suspect]
     Active Substance: ADALIMUMAB
     Route: 058
  13. XELJANZ [Concomitant]
     Active Substance: TOFACITINIB CITRATE
     Indication: RHEUMATOID ARTHRITIS
     Route: 048
  14. ANAKINRA [Suspect]
     Active Substance: ANAKINRA
     Route: 058
  15. METHOTREXATE. [Suspect]
     Active Substance: METHOTREXATE
     Route: 058
  16. LEFLUNOMIDE. [Suspect]
     Active Substance: LEFLUNOMIDE
     Indication: RHEUMATOID ARTHRITIS
     Route: 065
  17. LEFLUNOMIDE. [Suspect]
     Active Substance: LEFLUNOMIDE
     Route: 065
  18. ORENCIA [Suspect]
     Active Substance: ABATACEPT
     Route: 042
  19. ACTEMRA [Suspect]
     Active Substance: TOCILIZUMAB
     Indication: PRODUCT USED FOR UNKNOWN INDICATION
     Dosage: THERAPY DURATION: 2 YEARS
     Route: 065
  20. ANAKINRA [Suspect]
     Active Substance: ANAKINRA
     Route: 058
  21. HUMIRA [Suspect]
     Active Substance: ADALIMUMAB
     Route: 058
  22. METHOTREXATE. [Suspect]
     Active Substance: METHOTREXATE
     Indication: PRODUCT USED FOR UNKNOWN INDICATION
     Route: 065
  23. HYDROXYCHLOROQUINE [Suspect]
     Active Substance: HYDROXYCHLOROQUINE
     Indication: RHEUMATOID ARTHRITIS
     Dosage: THERAPY DURATION: 2 MONTHS
     Route: 065
  24. ORENCIA [Suspect]
     Active Substance: ABATACEPT
     Route: 042
  25. APO-LEFLUNOMIDE [Suspect]
     Active Substance: LEFLUNOMIDE
     Indication: RHEUMATOID ARTHRITIS
     Route: 065
  26. ANAKINRA [Suspect]
     Active Substance: ANAKINRA
     Indication: RHEUMATOID ARTHRITIS
     Dosage: THERAPY DURATION:  2 YEARS
     Route: 058
  27. ORENCIA [Suspect]
     Active Substance: ABATACEPT
     Indication: RHEUMATOID ARTHRITIS
     Route: 042
  28. ORENCIA [Suspect]
     Active Substance: ABATACEPT
     Route: 042
  29. XELJANZ [Concomitant]
     Active Substance: TOFACITINIB CITRATE
     Route: 065

REACTIONS (19)
  - Synovitis [Unknown]
  - Knee arthroplasty [Unknown]
  - Joint arthroplasty [Unknown]
  - Vasculitic rash [Unknown]
  - Osteoarthritis [Unknown]
  - Rash [Unknown]
  - Infiltration anaesthesia [Unknown]
  - Contraindicated product administered [Unknown]
  - Rheumatoid arthritis [Unknown]
  - Secretion discharge [Unknown]
  - Drug intolerance [Unknown]
  - Spinal stenosis [Unknown]
  - Condition aggravated [Unknown]
  - Back disorder [Unknown]
  - Mouth ulceration [Unknown]
  - Drug ineffective [Unknown]
  - Rheumatoid factor positive [Unknown]
  - Cutaneous vasculitis [Unknown]
  - Oral mucosal exfoliation [Unknown]
